FAERS Safety Report 24058624 (Version 1)
Quarter: 2024Q3

REPORT INFORMATION
  Report Type: Spontaneous
  Country: US (occurrence: US)
  Receive Date: 20240708
  Receipt Date: 20240708
  Transmission Date: 20241016
  Serious: No
  Sender: AUROBINDO
  Company Number: US-AUROBINDO-AUR-APL-2024-018444

PATIENT
  Age: 74 Week
  Sex: Female
  Weight: 95.254 kg

DRUGS (1)
  1. VALACYCLOVIR HYDROCHLORIDE [Suspect]
     Active Substance: VALACYCLOVIR HYDROCHLORIDE
     Indication: Herpes virus infection
     Dosage: 1 DOSAGE FORM, TWO TIMES A DAY
     Route: 048
     Dates: start: 20240403

REACTIONS (5)
  - Abdominal discomfort [Unknown]
  - Asthenia [Unknown]
  - Emergency care [Unknown]
  - Product taste abnormal [Unknown]
  - Drug ineffective [Unknown]
